FAERS Safety Report 18433712 (Version 4)
Quarter: 2021Q2

REPORT INFORMATION
  Report Type: Report from Study
  Country: BR (occurrence: BR)
  Receive Date: 20201027
  Receipt Date: 20210405
  Transmission Date: 20210717
  Serious: Yes (Other)
  Sender: FDA-Public Use
  Company Number: PHHY2017BR123873

PATIENT
  Age: 70 Year
  Sex: Male
  Weight: 92 kg

DRUGS (11)
  1. COSENTYX [Suspect]
     Active Substance: SECUKINUMAB
     Indication: PSORIATIC ARTHROPATHY
     Dosage: 2 DF (150 MG), QMO
     Route: 058
     Dates: start: 201701
  2. COSENTYX [Suspect]
     Active Substance: SECUKINUMAB
     Dosage: 300 MG, QMO
     Route: 058
     Dates: start: 20181213
  3. COSENTYX [Suspect]
     Active Substance: SECUKINUMAB
     Dosage: 2 DF (150 MG), QMO
     Route: 058
     Dates: start: 201707
  4. CYCLOSPORINE. [Concomitant]
     Active Substance: CYCLOSPORINE
     Indication: PSORIASIS
     Dosage: 1 DF, QD
     Route: 048
     Dates: start: 2015, end: 2015
  5. COSENTYX [Suspect]
     Active Substance: SECUKINUMAB
     Dosage: UNK
     Route: 065
     Dates: start: 20201009
  6. COSENTYX [Suspect]
     Active Substance: SECUKINUMAB
     Dosage: UNK
     Route: 065
     Dates: start: 20190613
  7. CLOBETASOL PROPIONATE. [Concomitant]
     Active Substance: CLOBETASOL PROPIONATE
     Indication: PRURITUS
     Dosage: UNK (STARTED MANY YEARS AGO, DERMAL ROUTE)
     Route: 065
  8. COSENTYX [Suspect]
     Active Substance: SECUKINUMAB
     Indication: PSORIASIS
     Dosage: 2 DF, QW
     Route: 058
     Dates: start: 20161222
  9. COSENTYX [Suspect]
     Active Substance: SECUKINUMAB
     Dosage: 2 DF (150 MG), QMO
     Route: 058
     Dates: start: 201706
  10. COSENTYX [Suspect]
     Active Substance: SECUKINUMAB
     Dosage: 300 MG, QMO
     Route: 058
     Dates: start: 201711
  11. COSENTYX [Suspect]
     Active Substance: SECUKINUMAB
     Dosage: 150 MG (2 AMPOULES, EVERY 30 DAYS) IN 2016/2017 UNKNOWN DATE
     Route: 058
     Dates: end: 202010

REACTIONS (37)
  - Psoriasis [Not Recovered/Not Resolved]
  - Cough [Recovered/Resolved]
  - Limb discomfort [Unknown]
  - Abdominal pain upper [Recovered/Resolved]
  - Weight decreased [Recovered/Resolved]
  - Blood pressure increased [Recovering/Resolving]
  - Joint injury [Not Recovered/Not Resolved]
  - Oropharyngeal pain [Recovered/Resolved]
  - Malaise [Recovered/Resolved]
  - Gait disturbance [Not Recovered/Not Resolved]
  - Dysstasia [Recovering/Resolving]
  - Vomiting [Recovered/Resolved]
  - Cough [Recovered/Resolved]
  - Blister [Not Recovered/Not Resolved]
  - Arthralgia [Recovering/Resolving]
  - Dysentery [Recovered/Resolved]
  - Ligament sprain [Unknown]
  - COVID-19 [Recovered/Resolved]
  - Hyperhidrosis [Recovered/Resolved]
  - Erythema [Not Recovered/Not Resolved]
  - Arthropathy [Recovering/Resolving]
  - Joint lock [Unknown]
  - Thyroid disorder [Recovering/Resolving]
  - Dysphonia [Recovering/Resolving]
  - Eating disorder [Recovered/Resolved]
  - Asthenia [Recovering/Resolving]
  - Muscle atrophy [Recovering/Resolving]
  - Fatigue [Unknown]
  - Headache [Recovered/Resolved]
  - Limb injury [Recovered/Resolved]
  - Skin haemorrhage [Not Recovered/Not Resolved]
  - Myopia [Not Recovered/Not Resolved]
  - Knee deformity [Unknown]
  - Chest pain [Recovered/Resolved]
  - Fall [Recovered/Resolved]
  - Pruritus [Not Recovered/Not Resolved]
  - Oropharyngeal discomfort [Recovered/Resolved]

NARRATIVE: CASE EVENT DATE: 202010
